FAERS Safety Report 5257807-0 (Version None)
Quarter: 2007Q1

REPORT INFORMATION
  Report Type: 
  Country: None (occurrence: None)
  Receive Date: 20061117
  Receipt Date: 20060413
  Transmission Date: 20070707
  Serious: Yes (Other)
  Sender: FDA-Public Use
  Company Number: US-JNJFOC-20060403438

PATIENT
  Age: 50 Year
  Sex: Male

DRUGS (1)
  1. LEVAQUIN [Suspect]
     Indication: INFECTED CYST
     Dosage: , 1 IN 1 DAY, ORAL
     Route: 048
     Dates: start: 20030601, end: 20030601

REACTIONS (1)
  - TENDONITIS [None]
